FAERS Safety Report 6286477-8 (Version None)
Quarter: 2009Q3

REPORT INFORMATION
  Report Type: 
  Country: None (occurrence: None)
  Receive Date: 20090728
  Receipt Date: 20090716
  Transmission Date: 20100115
  Serious: Yes (Hospitalization)
  Sender: FDA-Public Use
  Company Number: B0585733A

PATIENT
  Sex: Male

DRUGS (9)
  1. KREDEX [Suspect]
     Route: 048
     Dates: end: 20090601
  2. TRAVATAN [Concomitant]
     Route: 065
  3. WARFARIN SODIUM [Concomitant]
     Route: 065
  4. IMPUGAN [Concomitant]
     Route: 065
  5. ETALPHA [Concomitant]
     Route: 065
  6. IMDUR [Concomitant]
     Route: 065
  7. AZOPT [Concomitant]
     Route: 065
  8. NOVOMIX [Concomitant]
     Route: 065
  9. ENALAPRIL MALEATE [Concomitant]
     Route: 065

REACTIONS (2)
  - BLOOD CREATINE INCREASED [None]
  - BRADYCARDIA [None]
